FAERS Safety Report 20499751 (Version 1)
Quarter: 2022Q1

REPORT INFORMATION
  Report Type: Spontaneous
  Country: US (occurrence: US)
  Receive Date: 20220222
  Receipt Date: 20220222
  Transmission Date: 20220423
  Serious: No
  Sender: FDA-Public Use
  Company Number: US-UCBSA-2021000926

PATIENT
  Age: 12 Year
  Sex: Female
  Weight: 76 kg

DRUGS (8)
  1. LEVETIRACETAM [Suspect]
     Active Substance: LEVETIRACETAM
     Indication: Generalised tonic-clonic seizure
  2. GABAPENTIN [Concomitant]
     Active Substance: GABAPENTIN
     Indication: Idiopathic intracranial hypertension
  3. NARATRIPTAN [Concomitant]
     Active Substance: NARATRIPTAN HYDROCHLORIDE
     Indication: Idiopathic intracranial hypertension
  4. MAGNESIUM [Concomitant]
     Active Substance: MAGNESIUM
     Indication: Idiopathic intracranial hypertension
  5. LORAZEPAM [Concomitant]
     Active Substance: LORAZEPAM
     Indication: Generalised tonic-clonic seizure
  6. PYRIDOXINE [Concomitant]
     Active Substance: PYRIDOXINE
     Indication: Generalised tonic-clonic seizure
  7. FOSPHENYTOIN [Concomitant]
     Active Substance: FOSPHENYTOIN
     Indication: Generalised tonic-clonic seizure
  8. BACLOFEN [Concomitant]
     Active Substance: BACLOFEN
     Indication: Product used for unknown indication

REACTIONS (2)
  - Epilepsy [Recovering/Resolving]
  - Seizure [Unknown]
